FAERS Safety Report 12821490 (Version 2)
Quarter: 2016Q4

REPORT INFORMATION
  Report Type: Spontaneous
  Country: JP (occurrence: JP)
  Receive Date: 20161006
  Receipt Date: 20161007
  Transmission Date: 20170207
  Serious: Yes (Other)
  Sender: FDA-Public Use
  Company Number: JP-ASTRAZENECA-2016SF04984

PATIENT
  Age: 40 Year
  Sex: Female
  Weight: 67.3 kg

DRUGS (3)
  1. LINAGLIPTIN [Concomitant]
     Active Substance: LINAGLIPTIN
     Dosage: 5 MG BEFORE BREAKFAST
     Route: 048
  2. LEVOFLOXACIN HEMIHYDRATE [Concomitant]
     Active Substance: LEVOFLOXACIN
     Dosage: 250 MG AFTER BREAKFAST
     Route: 048
  3. CRESTOR [Suspect]
     Active Substance: ROSUVASTATIN CALCIUM
     Dosage: 2.5 MG AFTER SUPPER
     Route: 048

REACTIONS (3)
  - Arthralgia [Recovering/Resolving]
  - Acute kidney injury [Unknown]
  - Malaise [Recovering/Resolving]
